FAERS Safety Report 7801652-6 (Version None)
Quarter: 2011Q4

REPORT INFORMATION
  Report Type: 
  Country: None (occurrence: None)
  Receive Date: 20111007
  Receipt Date: 20110915
  Transmission Date: 20120403
  Serious: Yes (Other)
  Sender: FDA-Public Use
  Company Number: IT-ASTELLAS-2011JP006985

PATIENT
  Age: 62 Year

DRUGS (4)
  1. PANTOPRAZOLE [Suspect]
     Route: 065
  2. TACROLIMUS [Suspect]
     Route: 065
  3. MF59-ADJUVANTED H1N1V VACCINE [Suspect]
     Route: 065
  4. ASPIRIN [Suspect]
     Route: 065

REACTIONS (1)
  - ISCHAEMIC STROKE [None]
